FAERS Safety Report 8135720-9 (Version None)
Quarter: 2012Q1

REPORT INFORMATION
  Report Type: 
  Country: None (occurrence: None)
  Receive Date: 20120214
  Receipt Date: 20120120
  Transmission Date: 20120608
  Serious: Yes (Other)
  Sender: FDA-Public Use
  Company Number: GB-GLAXOSMITHKLINE-B0776676A

PATIENT
  Sex: Female

DRUGS (4)
  1. EUMOVATE [Suspect]
     Indication: PRODUCT USED FOR UNKNOWN INDICATION
     Route: 065
  2. ANTIBIOTICS [Suspect]
     Indication: INFECTION
     Route: 065
  3. NICOTINE [Suspect]
     Indication: EX-TOBACCO USER
     Route: 062
     Dates: start: 20120101
  4. NICOTINE POLACRILEX [Concomitant]

REACTIONS (14)
  - PYREXIA [None]
  - PRURITUS [None]
  - BLOOD PRESSURE INCREASED [None]
  - HYPERSOMNIA [None]
  - CONTUSION [None]
  - APPLICATION SITE RASH [None]
  - DRUG INEFFECTIVE [None]
  - MALAISE [None]
  - INFECTION [None]
  - ABDOMINAL PAIN UPPER [None]
  - DELIRIUM [None]
  - EMOTIONAL DISTRESS [None]
  - FEELING HOT [None]
  - DIARRHOEA [None]
